FAERS Safety Report 6132971-X (Version None)
Quarter: 2009Q1

REPORT INFORMATION
  Report Type: 
  Country: None (occurrence: None)
  Receive Date: 20090326
  Receipt Date: 20090316
  Transmission Date: 20090719
  Serious: Yes (Hospitalization)
  Sender: FDA-Public Use
  Company Number: BR-ABBOTT-09P-020-0501791-00

PATIENT
  Sex: Female

DRUGS (3)
  1. HUMIRA [Suspect]
     Indication: RHEUMATOID ARTHRITIS
     Route: 058
     Dates: start: 20081027, end: 20090101
  2. PARACETAMOL [Concomitant]
     Indication: RHEUMATOID ARTHRITIS
  3. UNKNOWN MEDICATION [Concomitant]
     Indication: RHEUMATOID ARTHRITIS

REACTIONS (4)
  - IMMUNODEFICIENCY [None]
  - NEPHRITIS [None]
  - PAIN [None]
  - URINARY TRACT INFECTION [None]
